FAERS Safety Report 15803718 (Version 1)
Quarter: 2019Q1

REPORT INFORMATION
  Report Type: Spontaneous
  Country: TW (occurrence: TW)
  Receive Date: 20190109
  Receipt Date: 20190109
  Transmission Date: 20190417
  Serious: Yes (Hospitalization)
  Sender: FDA-Public Use
  Company Number: TW-IMPAX LABORATORIES, LLC-2018-IPXL-04449

PATIENT
  Age: 48 Year
  Sex: Female

DRUGS (1)
  1. PROPRANOLOL HYDROCHLORIDE IR [Suspect]
     Active Substance: PROPRANOLOL HYDROCHLORIDE
     Indication: SUICIDE ATTEMPT
     Dosage: 5040 MILLIGRAM, SINGLE
     Route: 048

REACTIONS (8)
  - Toxicity to various agents [Recovered/Resolved]
  - Intentional overdose [Recovered/Resolved]
  - Bradycardia [Recovered/Resolved]
  - Hypotension [Recovered/Resolved]
  - Cardiac arrest [Recovered/Resolved]
  - Circulatory collapse [Recovered/Resolved]
  - Pulseless electrical activity [Recovered/Resolved]
  - Seizure [Recovered/Resolved]
